FAERS Safety Report 8169862-9 (Version None)
Quarter: 2012Q1

REPORT INFORMATION
  Report Type: 
  Country: None (occurrence: None)
  Receive Date: 20120228
  Receipt Date: 20120220
  Transmission Date: 20120608
  Serious: Yes (Other)
  Sender: FDA-Public Use
  Company Number: IE-JNJFOC-20120211526

PATIENT
  Sex: Male

DRUGS (4)
  1. WARFARIN SODIUM [Interacting]
     Indication: AORTIC VALVE REPLACEMENT
     Route: 048
  2. MICONAZOLE [Suspect]
     Indication: RASH
     Route: 061
     Dates: start: 20111116, end: 20111130
  3. MICONAZOLE [Suspect]
     Route: 061
  4. CETIRIZINE [Concomitant]
     Indication: RASH PRURITIC
     Route: 065
     Dates: start: 20111116, end: 20111130

REACTIONS (2)
  - INTERNATIONAL NORMALISED RATIO INCREASED [None]
  - DRUG INTERACTION [None]
